FAERS Safety Report 5282394-0 (Version None)
Quarter: 2007Q1

REPORT INFORMATION
  Report Type: 
  Country: None (occurrence: None)
  Receive Date: 20070326
  Receipt Date: 20070315
  Transmission Date: 20070707
  Serious: Yes (Other)
  Sender: FDA-Public Use
  Company Number: GXKR2007GB02621

PATIENT
  Age: 70 Year
  Sex: Male

DRUGS (5)
  1. LISINOPRIL [Suspect]
     Dosage: 10 MG, ORAL
     Route: 048
     Dates: start: 20050615
  2. AMITRIPTYLINE HCL [Concomitant]
  3. BENDROFLUAZIDE (BENDROFLUMETHIAZIDE) [Concomitant]
  4. FELODIPINE [Concomitant]
  5. SIMVASTATIN [Concomitant]

REACTIONS (2)
  - ABNORMAL DREAMS [None]
  - AGGRESSION [None]
